FAERS Safety Report 5556380-7 (Version None)
Quarter: 2007Q4

REPORT INFORMATION
  Report Type: 
  Country: None (occurrence: None)
  Receive Date: 20071211
  Receipt Date: 20071127
  Transmission Date: 20080405
  Serious: Yes (Hospitalization)
  Sender: FDA-Public Use
  Company Number: POMP-11284

PATIENT
  Age: 1 Year
  Sex: Male
  Weight: 10.35 kg

DRUGS (17)
  1. MYOZYME [Suspect]
     Indication: GLYCOGEN STORAGE DISEASE TYPE II
     Dosage: 40 MG/KG Q2WKS IV
     Route: 042
     Dates: start: 20070801
  2. MYOZYME [Suspect]
     Indication: GLYCOGEN STORAGE DISEASE TYPE II
     Dosage: 30 MG/KG Q2WKS IV
     Route: 042
     Dates: start: 20070509, end: 20070701
  3. MYOZYME [Suspect]
     Indication: GLYCOGEN STORAGE DISEASE TYPE II
     Dosage: 20 MG/KG Q2WKS IV
     Route: 042
     Dates: start: 20060911, end: 20070401
  4. RITUXIMAB [Concomitant]
  5. METHOTREXATE [Concomitant]
  6. IMMUNE GLOBULIN INTRAVENOUS (HUMAN) [Concomitant]
  7. BENADRYL [Concomitant]
  8. TYLENOL [Concomitant]
  9. FLOVENT [Concomitant]
  10. FUROSEMIDE [Concomitant]
  11. CULTURELLE [Concomitant]
  12. PREVACID [Concomitant]
  13. XOPENEX [Concomitant]
  14. SODIUM CHLORIDE [Concomitant]
  15. SEPTRA [Concomitant]
  16. SYNAGIS [Concomitant]
  17. ARANESP [Concomitant]

REACTIONS (3)
  - CATHETER RELATED COMPLICATION [None]
  - MALAISE [None]
  - RESPIRATORY DISORDER [None]
